FAERS Safety Report 9014003 (Version 2)
Quarter: 2013Q1

REPORT INFORMATION
  Report Type: Spontaneous
  Country: DE (occurrence: DE)
  Receive Date: 20130115
  Receipt Date: 20130313
  Transmission Date: 20140127
  Serious: Yes (Other)
  Sender: FDA-Public Use
  Company Number: DE-ROCHE-1179435

PATIENT
  Sex: Female
  Weight: 58 kg

DRUGS (2)
  1. BEVACIZUMAB [Suspect]
     Indication: SMALL INTESTINE CARCINOMA METASTATIC
     Route: 042
     Dates: start: 201110
  2. IRINOTECAN [Concomitant]
     Route: 042
     Dates: start: 201110

REACTIONS (2)
  - Pulpitis dental [Recovered/Resolved]
  - Tooth extraction [Recovered/Resolved]
